FAERS Safety Report 24355458 (Version 1)
Quarter: 2024Q3

REPORT INFORMATION
  Report Type: Spontaneous
  Country: US (occurrence: US)
  Receive Date: 20240924
  Receipt Date: 20240924
  Transmission Date: 20241016
  Serious: No
  Sender: AZURITY PHARMACEUTICALS
  Company Number: US-AZURITY PHARMACEUTICALS, INC.-US-2023ARB004726

PATIENT
  Age: 50 Year
  Sex: Female

DRUGS (2)
  1. EVEKEO [Suspect]
     Active Substance: AMPHETAMINE SULFATE
     Indication: Attention deficit hyperactivity disorder
     Dosage: 40 MICROGRAM, QD
     Route: 048
  2. ZENZEDI [Suspect]
     Active Substance: DEXTROAMPHETAMINE SULFATE
     Indication: Attention deficit hyperactivity disorder
     Dosage: 60 MICROGRAM, QD
     Route: 048

REACTIONS (5)
  - Panic attack [Unknown]
  - Anxiety [Unknown]
  - Unevaluable event [Unknown]
  - Adverse drug reaction [Unknown]
  - Product use issue [Unknown]
